FAERS Safety Report 9067640 (Version 1)
Quarter: 2013Q1

REPORT INFORMATION
  Report Type: Spontaneous
  Country: GB (occurrence: GB)
  Receive Date: 20130206
  Receipt Date: 20130206
  Transmission Date: 20140127
  Serious: Yes (Other)
  Sender: FDA-Public Use
  Company Number: GB-PFIZER INC-2013043518

PATIENT
  Age: 41 Year
  Sex: Female
  Weight: 70 kg

DRUGS (5)
  1. SERTRALINE HCL [Suspect]
     Indication: POST-TRAUMATIC STRESS DISORDER
     Dosage: 50 MG, UNK
     Route: 048
     Dates: start: 20110807, end: 2011
  2. SERTRALINE HCL [Suspect]
     Indication: DEPRESSION
     Dosage: 100 MG, UNK
     Route: 048
     Dates: start: 2011, end: 20111007
  3. SERTRALINE HCL [Suspect]
     Indication: ANXIETY
     Dosage: 150 MG, UNK
     Route: 048
     Dates: start: 20111008, end: 20111108
  4. SERTRALINE HCL [Suspect]
     Dosage: 100 MG, UNK
     Route: 048
     Dates: start: 20111109, end: 20111117
  5. SERTRALINE HCL [Suspect]
     Dosage: 50 MG, UNK
     Route: 048
     Dates: start: 20111118, end: 20111201

REACTIONS (15)
  - Dyspnoea [Recovered/Resolved]
  - Asphyxia [Recovered/Resolved]
  - Dry mouth [Unknown]
  - Decreased appetite [Unknown]
  - Weight decreased [Unknown]
  - Pain [Unknown]
  - Cough [Recovered/Resolved]
  - Poor quality sleep [Recovered/Resolved]
  - Emotional distress [Recovered/Resolved]
  - Nightmare [Unknown]
  - Drug ineffective [Unknown]
  - Epistaxis [Unknown]
  - Urinary incontinence [Unknown]
  - Viral infection [Unknown]
  - Movement disorder [Unknown]
